FAERS Safety Report 25817797 (Version 1)
Quarter: 2025Q3

REPORT INFORMATION
  Report Type: Spontaneous
  Country: US (occurrence: US)
  Receive Date: 20250918
  Receipt Date: 20250918
  Transmission Date: 20251021
  Serious: Yes (Other)
  Sender: AMGEN
  Company Number: US-AMGEN-USASP2025181861

PATIENT

DRUGS (2)
  1. PROLIA [Suspect]
     Active Substance: DENOSUMAB
     Indication: Osteoporosis
     Route: 065
  2. XGEVA [Suspect]
     Active Substance: DENOSUMAB
     Indication: Neoplasm malignant
     Route: 065

REACTIONS (3)
  - Osteonecrosis of jaw [Recovered/Resolved]
  - Oroantral fistula [Recovered/Resolved]
  - Sinusitis [Recovered/Resolved]
